FAERS Safety Report 7262406-5 (Version None)
Quarter: 2011Q1

REPORT INFORMATION
  Report Type: 
  Country: None (occurrence: None)
  Receive Date: 20110130
  Receipt Date: 20101117
  Transmission Date: 20110831
  Serious: No
  Sender: FDA-Public Use
  Company Number: US-ABBOTT-10P-163-0686132-00

PATIENT
  Age: 46 Year
  Sex: Female

DRUGS (5)
  1. MULTI-VITAMIN [Concomitant]
     Indication: VITAMIN SUPPLEMENTATION
  2. COLAZAL [Concomitant]
     Indication: COLITIS
  3. CALTRATE + D [Concomitant]
     Indication: VITAMIN SUPPLEMENTATION
  4. HUMIRA [Suspect]
     Indication: COLITIS ULCERATIVE
     Dates: start: 20100801
  5. CALTRATE + D [Concomitant]
     Indication: MINERAL SUPPLEMENTATION

REACTIONS (3)
  - COLITIS [None]
  - DIARRHOEA [None]
  - DEFAECATION URGENCY [None]
